FAERS Safety Report 13946490 (Version 1)
Quarter: 2017Q3

REPORT INFORMATION
  Report Type: Spontaneous
  Country: US (occurrence: US)
  Receive Date: 20170907
  Receipt Date: 20170907
  Transmission Date: 20171128
  Serious: Yes (Disabling, Other)
  Sender: FDA-Public Use
  Company Number: US-TEVA-804123USA

PATIENT
  Sex: Female

DRUGS (1)
  1. AMIODARONE [Suspect]
     Active Substance: AMIODARONE
     Indication: ATRIAL FIBRILLATION
     Route: 065

REACTIONS (11)
  - Coordination abnormal [Unknown]
  - Corneal deposits [Unknown]
  - Astigmatism [Unknown]
  - Blindness [Unknown]
  - Off label use [Unknown]
  - Toxicity to various agents [Unknown]
  - Visual acuity reduced [Unknown]
  - Visual impairment [Unknown]
  - Vitreous floaters [Unknown]
  - Anxiety [Unknown]
  - Presbyopia [Unknown]
